FAERS Safety Report 6742506-6 (Version None)
Quarter: 2010Q2

REPORT INFORMATION
  Report Type: 
  Country: None (occurrence: None)
  Receive Date: 20100526
  Receipt Date: 20100519
  Transmission Date: 20101027
  Serious: Yes (Hospitalization, Other)
  Sender: FDA-Public Use
  Company Number: PHHO2009JP15061

PATIENT
  Sex: Male
  Weight: 41 kg

DRUGS (16)
  1. CERTICAN [Suspect]
     Indication: RENAL TRANSPLANT
     Dosage: 1 MG
     Route: 048
     Dates: start: 20090701, end: 20091203
  2. CERTICAN [Suspect]
     Dosage: 1MG
     Route: 048
     Dates: start: 20091210, end: 20100420
  3. CERTICAN [Suspect]
     Dosage: 1 MG
     Route: 048
     Dates: start: 20100426
  4. NEORAL [Suspect]
     Indication: RENAL TRANSPLANT
     Dosage: 40MG
     Route: 048
     Dates: start: 20090924
  5. MEDROL [Concomitant]
     Indication: RENAL TRANSPLANT
     Dosage: 4 MG
     Route: 048
     Dates: start: 20081024
  6. SIMULECT [Concomitant]
     Indication: RENAL TRANSPLANT
  7. NEUER [Concomitant]
     Indication: GASTRITIS PROPHYLAXIS
  8. TAKEPRON [Concomitant]
     Indication: GASTRITIS PROPHYLAXIS
  9. NORVASC [Concomitant]
     Indication: RENAL HYPERTENSION
  10. CANDESARTAN CILEXETIL [Concomitant]
     Indication: RENAL HYPERTENSION
  11. MAINTATE [Concomitant]
     Indication: RENAL HYPERTENSION
  12. ISODINE [Concomitant]
     Indication: INFECTION PROPHYLAXIS
  13. MEVALOTIN [Concomitant]
     Indication: HYPERCHOLESTEROLAEMIA
  14. URINORM [Concomitant]
     Indication: HYPERURICAEMIA
  15. DOXAZOSIN MESYLATE [Concomitant]
     Indication: RENAL HYPERTENSION
  16. SPIRIVA [Concomitant]
     Indication: EMPHYSEMA

REACTIONS (6)
  - BODY TEMPERATURE DECREASED [None]
  - CHEST X-RAY ABNORMAL [None]
  - NEPHROPATHY [None]
  - PNEUMONIA [None]
  - PNEUMONIA BACTERIAL [None]
  - PYREXIA [None]
